FAERS Safety Report 7277972-3 (Version None)
Quarter: 2011Q1

REPORT INFORMATION
  Report Type: 
  Country: None (occurrence: None)
  Receive Date: 20110207
  Receipt Date: 20110114
  Transmission Date: 20110831
  Serious: Yes (Other)
  Sender: FDA-Public Use
  Company Number: US-ROCHE-757039

PATIENT
  Age: 63 Year
  Sex: Male

DRUGS (3)
  1. CISPLATIN [Suspect]
     Dosage: ROUTE AS PER PROTOCOL
     Route: 042
     Dates: end: 20100615
  2. CETUXIMAB [Suspect]
     Route: 042
     Dates: end: 20100615
  3. BEVACIZUMAB [Suspect]
     Dosage: ROUTE AS PER PROTOCOL.
     Route: 042
     Dates: end: 20100615

REACTIONS (1)
  - OESOPHAGEAL STENOSIS [None]
